FAERS Safety Report 13886406 (Version 1)
Quarter: 2017Q3

REPORT INFORMATION
  Report Type: Report from Study
  Country: US (occurrence: US)
  Receive Date: 20170821
  Receipt Date: 20170821
  Transmission Date: 20171127
  Serious: Yes (Hospitalization)
  Sender: FDA-Public Use
  Company Number: US-JNJFOC-20170816171

PATIENT
  Sex: Female

DRUGS (11)
  1. IMBRUVICA [Suspect]
     Active Substance: IBRUTINIB
     Indication: CHRONIC LYMPHOCYTIC LEUKAEMIA
     Route: 048
     Dates: start: 20161130
  2. MOBIC [Concomitant]
     Active Substance: MELOXICAM
  3. LASIX [Concomitant]
     Active Substance: FUROSEMIDE
  4. GLIPIZIDE. [Concomitant]
     Active Substance: GLIPIZIDE
  5. TRADJENTA [Concomitant]
     Active Substance: LINAGLIPTIN
  6. LEVAQUIN [Concomitant]
     Active Substance: LEVOFLOXACIN
  7. CELEXA [Concomitant]
     Active Substance: CITALOPRAM HYDROBROMIDE
  8. ALLOPURINOL. [Concomitant]
     Active Substance: ALLOPURINOL
  9. INDOMETHACIN. [Concomitant]
     Active Substance: INDOMETHACIN
  10. COLCHICINE. [Concomitant]
     Active Substance: COLCHICINE
  11. SOTALOL. [Concomitant]
     Active Substance: SOTALOL

REACTIONS (4)
  - Fall [Not Recovered/Not Resolved]
  - Concussion [Unknown]
  - Tooth fracture [Unknown]
  - Contusion [Unknown]
